FAERS Safety Report 8402266-X (Version None)
Quarter: 2012Q2

REPORT INFORMATION
  Report Type: 
  Country: None (occurrence: None)
  Receive Date: 20120601
  Receipt Date: 20120522
  Transmission Date: 20120825
  Serious: Yes (Death, Hospitalization, Other)
  Sender: FDA-Public Use
  Company Number: US-PFIZER INC-2010001618

PATIENT
  Age: 41 Year
  Sex: Female

DRUGS (11)
  1. DIPHENHYDRAMINE HCL [Suspect]
     Dosage: UNK
     Route: 048
     Dates: start: 20080101
  2. OXYMORPHONE [Suspect]
     Dosage: UNK
     Route: 048
     Dates: start: 20080101
  3. VENLAFAXINE HCL [Suspect]
     Dosage: UNK
     Route: 048
     Dates: start: 20080101
  4. QUETIAPINE [Suspect]
     Dosage: UNK
     Route: 048
     Dates: start: 20080101
  5. HYDROXYZINE PAMOATE [Suspect]
     Dosage: UNK
     Route: 048
     Dates: start: 20080101
  6. ZOLPIDEM TARTRATE [Suspect]
     Dosage: UNK
     Route: 048
     Dates: start: 20080101
  7. CLONAZEPAM [Suspect]
     Dosage: UNK
     Route: 048
     Dates: start: 20080101
  8. ACETYLSALICYLIC ACID SRT [Suspect]
     Dosage: UNK
     Route: 048
     Dates: start: 20080101
  9. CARISOPRODOL [Concomitant]
     Route: 065
  10. HYDROCODONE BITARTRATE + ACETAMINOPHEN [Concomitant]
     Route: 065
  11. BUTALBITAL [Suspect]
     Route: 048

REACTIONS (9)
  - ACIDOSIS [None]
  - MULTI-ORGAN FAILURE [None]
  - CYANOSIS [None]
  - HYPOTENSION [None]
  - PNEUMONIA ASPIRATION [None]
  - ELECTROENCEPHALOGRAM ABNORMAL [None]
  - UNRESPONSIVE TO STIMULI [None]
  - COMPLETED SUICIDE [None]
  - PANCREATITIS [None]
